FAERS Safety Report 10179250 (Version 1)
Quarter: 2014Q2

REPORT INFORMATION
  Report Type: Spontaneous
  Country: US (occurrence: US)
  Receive Date: 20140519
  Receipt Date: 20140519
  Transmission Date: 20141212
  Serious: No
  Sender: FDA-Public Use
  Company Number: US-ENDO PHARMACEUTICALS INC.-AMLO20140007

PATIENT
  Age: 66 Year
  Sex: Male

DRUGS (4)
  1. AMLODIPINE BESYLATE TABLETS 10MG [Suspect]
     Indication: HYPERTENSION
     Dosage: 10 MG
     Route: 048
     Dates: start: 20140210
  2. LISINOPRIL [Concomitant]
     Indication: HYPERTENSION
     Route: 048
     Dates: end: 2014
  3. LISINOPRIL [Concomitant]
     Route: 048
     Dates: start: 2014
  4. AMLODIPINE [Concomitant]
     Indication: HYPERTENSION
     Dosage: UNK
     Route: 048
     Dates: start: 2010, end: 20140209

REACTIONS (1)
  - Drug ineffective [Not Recovered/Not Resolved]
